FAERS Safety Report 17499714 (Version 1)
Quarter: 2020Q1

REPORT INFORMATION
  Report Type: Spontaneous
  Country: ES (occurrence: ES)
  Receive Date: 20200304
  Receipt Date: 20200304
  Transmission Date: 20200409
  Serious: Yes (Other)
  Sender: FDA-Public Use
  Company Number: ES-ASTRAZENECA-2020SE30752

PATIENT
  Age: 51 Year
  Sex: Female

DRUGS (2)
  1. MASTICAL [Concomitant]
     Active Substance: CALCIUM CARBONATE
     Indication: MENOPAUSE
     Route: 048
     Dates: start: 2015
  2. OLAPARIB. [Suspect]
     Active Substance: OLAPARIB
     Indication: OVARIAN CANCER
     Route: 048
     Dates: start: 20190725, end: 20190909

REACTIONS (1)
  - Erythema nodosum [Recovered/Resolved with Sequelae]

NARRATIVE: CASE EVENT DATE: 20190801
